FAERS Safety Report 15629050 (Version 1)
Quarter: 2018Q4

REPORT INFORMATION
  Report Type: Spontaneous
  Country: GB (occurrence: GB)
  Receive Date: 20181116
  Receipt Date: 20181116
  Transmission Date: 20190205
  Serious: Yes (Hospitalization)
  Sender: FDA-Public Use
  Company Number: GB-TEVA-2018-GB-975814

PATIENT
  Age: 93 Year
  Sex: Female

DRUGS (9)
  1. LANSOPRAZOLE. [Concomitant]
     Active Substance: LANSOPRAZOLE
  2. CLOPIDOGREL [Concomitant]
     Active Substance: CLOPIDOGREL BISULFATE
  3. FUROSEMIDE. [Suspect]
     Active Substance: FUROSEMIDE
     Dosage: 20 MILLIGRAM DAILY;
     Route: 048
     Dates: end: 20181001
  4. FENBID [Concomitant]
     Active Substance: IBUPROFEN
  5. PARACETAMOL [Concomitant]
     Active Substance: ACETAMINOPHEN
  6. LAXIDO [Concomitant]
     Active Substance: POLYETHYLENE GLYCOL 3350\POTASSIUM CHLORIDE\SODIUM BICARBONATE\SODIUM CHLORIDE
     Route: 065
  7. AMLODIPINE [Suspect]
     Active Substance: AMLODIPINE BESYLATE
     Route: 048
     Dates: end: 20181001
  8. TRAZODONE [Concomitant]
     Active Substance: TRAZODONE HYDROCHLORIDE
  9. HYDROXOCOBALAMIN [Concomitant]
     Active Substance: HYDROXOCOBALAMIN
     Dosage: 1MG/1ML SOLUTION FOR INJECTION AMPOULES

REACTIONS (2)
  - Hypotension [Recovering/Resolving]
  - Syncope [Recovered/Resolved]

NARRATIVE: CASE EVENT DATE: 20181001
